FAERS Safety Report 10852147 (Version 1)
Quarter: 2015Q1

REPORT INFORMATION
  Report Type: Spontaneous
  Country: US (occurrence: US)
  Receive Date: 20150222
  Receipt Date: 20150222
  Transmission Date: 20150721
  Serious: Yes (Hospitalization)
  Sender: FDA-Public Use
  Company Number: US-ALLERGAN-1421404US

PATIENT
  Age: 64 Year
  Sex: Female

DRUGS (4)
  1. BOTOX [Suspect]
     Active Substance: ONABOTULINUMTOXINA
     Indication: TORTICOLLIS
     Dosage: 200 UNITS, SINGLE
     Route: 030
     Dates: start: 20140812, end: 20140812
  2. BOTOX [Suspect]
     Active Substance: ONABOTULINUMTOXINA
     Dosage: 100 UNITS, SINGLE
  3. BOTOX [Suspect]
     Active Substance: ONABOTULINUMTOXINA
     Dosage: 100 UNITS, SINGLE
  4. CENTRUM SILVER [Concomitant]
     Active Substance: VITAMINS
     Indication: PRODUCT USED FOR UNKNOWN INDICATION
     Dosage: UNK

REACTIONS (5)
  - Tremor [Unknown]
  - Sinusitis [Unknown]
  - Throat tightness [Recovered/Resolved]
  - Drug ineffective [Unknown]
  - Insomnia [Unknown]

NARRATIVE: CASE EVENT DATE: 201409
